FAERS Safety Report 6122484-3 (Version None)
Quarter: 2009Q1

REPORT INFORMATION
  Report Type: 
  Country: None (occurrence: None)
  Receive Date: 20090318
  Receipt Date: 20090108
  Transmission Date: 20090719
  Serious: No
  Sender: FDA-Public Use
  Company Number: US-ASTRAZENECA-2009UW00724

PATIENT
  Age: 57 Year
  Sex: Female
  Weight: 95.3 kg

DRUGS (4)
  1. SYMBICORT [Suspect]
     Indication: ASTHMA
     Dosage: 160/4.5 UG
     Route: 055
     Dates: start: 20090106
  2. PROVENTIL [Concomitant]
  3. DIOVAN HCT [Concomitant]
     Dosage: 160/25
  4. VITAMIN B-12 [Concomitant]

REACTIONS (2)
  - CHEST DISCOMFORT [None]
  - COUGH [None]
